FAERS Safety Report 6028267-7 (Version None)
Quarter: 2008Q4

REPORT INFORMATION
  Report Type: 
  Country: None (occurrence: None)
  Receive Date: 20081231
  Receipt Date: 20081231
  Transmission Date: 20090506
  Serious: Yes (Other)
  Sender: FDA-Public Use
  Company Number: None

PATIENT
  Sex: Female

DRUGS (1)
  1. OTRIVIN MENTHOL (NCH) (XYLOMETAZOLINE HYDROCHLORIDE) UNKNOWN [Suspect]
     Indication: NASAL CONGESTION
     Dosage: NASAL
     Route: 045

REACTIONS (1)
  - EPISTAXIS [None]
